FAERS Safety Report 20189531 (Version 1)
Quarter: 2021Q4

REPORT INFORMATION
  Report Type: Spontaneous
  Country: US (occurrence: None)
  Receive Date: 20211215
  Receipt Date: 20211215
  Transmission Date: 20220303
  Serious: Yes (Disabling)
  Sender: FDA-Public Use
  Company Number: None

PATIENT
  Sex: Male
  Weight: 131.09 kg

DRUGS (9)
  1. INLYTA [Suspect]
     Active Substance: AXITINIB
     Dosage: FREQUENCY : TWICE A DAY;?
     Route: 048
  2. KEYTRUDA [Suspect]
     Active Substance: PEMBROLIZUMAB
     Indication: Product used for unknown indication
     Dosage: OTHER FREQUENCY : EVERY 21 DAYS;?OTHER ROUTE : INFUSION;?
     Route: 050
  3. MELFORMIN [Concomitant]
  4. ATENOLOL [Concomitant]
     Active Substance: ATENOLOL
  5. GLIPIZIDE [Concomitant]
     Active Substance: GLIPIZIDE
  6. AMITRIPTYLINE [Concomitant]
     Active Substance: AMITRIPTYLINE
  7. JARDIANCE [Concomitant]
     Active Substance: EMPAGLIFLOZIN
  8. LYRICA [Concomitant]
     Active Substance: PREGABALIN
  9. HYDRODONE-ACETAMINOPHEN [Concomitant]

REACTIONS (1)
  - Gait inability [None]
